FAERS Safety Report 12600315 (Version 1)
Quarter: 2016Q3

REPORT INFORMATION
  Report Type: Spontaneous
  Country: US (occurrence: US)
  Receive Date: 20160727
  Receipt Date: 20160727
  Transmission Date: 20161109
  Serious: Yes (Other)
  Sender: FDA-Public Use
  Company Number: PHHY2016US099945

PATIENT
  Age: 51 Year
  Sex: Male

DRUGS (3)
  1. PAMIDRONATE [Suspect]
     Active Substance: PAMIDRONATE DISODIUM
     Indication: PROSTATE CANCER
     Route: 065
  2. BICALUTAMIDE. [Suspect]
     Active Substance: BICALUTAMIDE
     Indication: PROSTATE CANCER
     Route: 065
  3. LEUPROLIDE//LEUPRORELIN [Suspect]
     Active Substance: LEUPROLIDE
     Indication: PROSTATE CANCER
     Route: 065

REACTIONS (5)
  - Small cell carcinoma [Unknown]
  - Malignant neoplasm progression [Unknown]
  - Metastases to liver [Unknown]
  - Lymphadenopathy [Unknown]
  - Metastases to chest wall [Unknown]
